FAERS Safety Report 23090791 (Version 2)
Quarter: 2023Q4

REPORT INFORMATION
  Report Type: Report from Study
  Country: US (occurrence: US)
  Receive Date: 20231020
  Receipt Date: 20231208
  Transmission Date: 20240109
  Serious: No
  Sender: FDA-Public Use
  Company Number: US-BIOVITRUM-2023-US-016984

PATIENT
  Age: 12 Month
  Sex: Female
  Weight: 8.97 kg

DRUGS (3)
  1. SYNAGIS [Suspect]
     Active Substance: PALIVIZUMAB
     Indication: Premature baby
     Dosage: EVERY 28  DAYS
     Route: 030
  2. SYNAGIS [Suspect]
     Active Substance: PALIVIZUMAB
     Indication: Chronic respiratory disease
  3. POLY-VI-SOL/IRON [Concomitant]
     Indication: Product used for unknown indication

REACTIONS (2)
  - Pyrexia [Recovered/Resolved]
  - Rhinorrhoea [Unknown]
